FAERS Safety Report 8012902-8 (Version None)
Quarter: 2011Q4

REPORT INFORMATION
  Report Type: 
  Country: None (occurrence: None)
  Receive Date: 20111223
  Receipt Date: 20111223
  Transmission Date: 20120403
  Serious: No
  Sender: FDA-Public Use
  Company Number: None

PATIENT
  Age: 75 Year
  Sex: Male
  Weight: 76.7 kg

DRUGS (1)
  1. OSELTAMIVIR [Suspect]
     Indication: ANTIVIRAL PROPHYLAXIS
     Dosage: 75 MG EVERY DAY PO
     Route: 048
     Dates: start: 20110307, end: 20110315

REACTIONS (2)
  - HALLUCINATION [None]
  - TREMOR [None]
